FAERS Safety Report 25682774 (Version 1)
Quarter: 2025Q3

REPORT INFORMATION
  Report Type: Spontaneous
  Country: US (occurrence: None)
  Receive Date: 20250814
  Receipt Date: 20250814
  Transmission Date: 20251021
  Serious: Yes (Disabling)
  Sender: FDA-CTU
  Company Number: None

PATIENT
  Age: 29 Year
  Sex: Female
  Weight: 76.5 kg

DRUGS (1)
  1. ZEPBOUND [Suspect]
     Active Substance: TIRZEPATIDE

REACTIONS (5)
  - Depression [None]
  - Anxiety [None]
  - Therapy change [None]
  - Insurance issue [None]
  - Product dosage form issue [None]
